FAERS Safety Report 14746606 (Version 1)
Quarter: 2018Q2

REPORT INFORMATION
  Report Type: Spontaneous
  Country: US (occurrence: US)
  Receive Date: 20180411
  Receipt Date: 20180411
  Transmission Date: 20180711
  Serious: Yes (Hospitalization, Other)
  Sender: FDA-Public Use
  Company Number: US-ALKERMES INC.-ALK-2018-001644

PATIENT
  Age: 49 Year
  Sex: Male
  Weight: 126.98 kg

DRUGS (1)
  1. VIVITROL [Suspect]
     Active Substance: NALTREXONE
     Indication: DRUG DEPENDENCE
     Dosage: 380 MG, QMO
     Route: 030
     Dates: start: 20180226

REACTIONS (12)
  - Malaise [Unknown]
  - Foot deformity [Recovering/Resolving]
  - Muscular weakness [Not Recovered/Not Resolved]
  - Joint dislocation [Unknown]
  - Mobility decreased [Not Recovered/Not Resolved]
  - Ankle fracture [Unknown]
  - Pain [Unknown]
  - Gait inability [Not Recovered/Not Resolved]
  - Suture rupture [Unknown]
  - Drug dependence [Recovered/Resolved]
  - Road traffic accident [Recovered/Resolved]
  - Tooth disorder [Not Recovered/Not Resolved]

NARRATIVE: CASE EVENT DATE: 2018
